FAERS Safety Report 5109639-1 (Version None)
Quarter: 2006Q3

REPORT INFORMATION
  Report Type: 
  Country: None (occurrence: None)
  Receive Date: 20060918
  Receipt Date: 20060907
  Transmission Date: 20061208
  Serious: Yes (Other)
  Sender: FDA-Public Use
  Company Number: 14737

PATIENT
  Age: 32 Year
  Sex: Female

DRUGS (3)
  1. PAMIDRONATE DISODIUM [Suspect]
     Indication: PAIN
     Dosage: 90 MG ONCE IV
     Route: 042
     Dates: start: 20060410, end: 20060410
  2. OMEPRAZOLE [Concomitant]
  3. PAROXETINE HCL [Concomitant]

REACTIONS (3)
  - MOBILITY DECREASED [None]
  - PAIN [None]
  - SLEEP DISORDER [None]
